FAERS Safety Report 4923953-1 (Version None)
Quarter: 2006Q1

REPORT INFORMATION
  Report Type: 
  Country: None (occurrence: None)
  Receive Date: 20060221
  Receipt Date: 20060208
  Transmission Date: 20060701
  Serious: Yes (Death, Life-Threatening)
  Sender: FDA-Public Use
  Company Number: 220625

PATIENT
  Age: 76 Year
  Sex: Female

DRUGS (10)
  1. RITUXAN [Suspect]
     Indication: NON-HODGKIN'S LYMPHOMA
     Dosage: 500 MG, INTRAVENOUS
     Route: 042
     Dates: start: 20051031
  2. VENA (DIPHENHYDRAMINE HYDROCHLORIDE) [Concomitant]
  3. LOXONIN (LOXOPROFEN SODIUM) [Concomitant]
  4. LASIX [Concomitant]
  5. ALDACTONE [Concomitant]
  6. LEVOFLOXACIN [Concomitant]
  7. SULFAMETHOXAZOLE + TRIMETHOPRIM [Concomitant]
  8. TAGAMET [Concomitant]
  9. DIPHENHYDRAMINE HCL [Concomitant]
  10. LOXOPROFEN SODIUM (LOXOPROFEN SODIUM) [Concomitant]

REACTIONS (13)
  - BLOOD CREATININE INCREASED [None]
  - BLOOD UREA INCREASED [None]
  - BRADYCARDIA [None]
  - DYSPNOEA [None]
  - GASTROINTESTINAL HAEMORRHAGE [None]
  - HEPATIC FAILURE [None]
  - HYPERKALAEMIA [None]
  - HYPOTENSION [None]
  - OXYGEN SATURATION DECREASED [None]
  - PNEUMONIA [None]
  - RESPIRATORY DISORDER [None]
  - TUMOUR LYSIS SYNDROME [None]
  - VENTRICULAR EXTRASYSTOLES [None]
